FAERS Safety Report 6287129-0 (Version None)
Quarter: 2009Q3

REPORT INFORMATION
  Report Type: 
  Country: None (occurrence: None)
  Receive Date: 20090724
  Receipt Date: 20090708
  Transmission Date: 20100115
  Serious: Yes (Hospitalization)
  Sender: FDA-Public Use
  Company Number: DSA_34030_2009

PATIENT
  Sex: Male

DRUGS (10)
  1. DILTIAZEM HCL [Suspect]
     Indication: ANGINA PECTORIS
     Dosage: (180 MG QD ORAL)
     Route: 048
  2. ASPIRIN [Suspect]
     Indication: PROPHYLAXIS
     Dosage: (75 MG QD ORAL)
     Route: 048
  3. TRANXENE [Suspect]
     Indication: DRUG USE FOR UNKNOWN INDICATION
     Dosage: (5 MG QD ORAL)
     Route: 048
  4. ZOLPIDEM TARTRATE [Suspect]
     Indication: INSOMNIA
     Dosage: (10 MG QD ORAL)
     Route: 048
  5. ACETAMINOPHEN [Suspect]
     Indication: DRUG USE FOR UNKNOWN INDICATION
     Dosage: (1 G BID ORAL)
     Route: 048
  6. CEFUROXIME AXETIL [Suspect]
     Indication: SINUSITIS
     Dosage: (250 MG BID ORAL)
     Route: 048
     Dates: start: 20090610, end: 20090614
  7. IMODIUM [Suspect]
     Indication: DIARRHOEA
     Dosage: (4 MG,  ORAL)
     Route: 048
     Dates: start: 20090613, end: 20090613
  8. IMODIUM [Suspect]
     Indication: DIARRHOEA
     Dosage: (4 MG,  ORAL)
     Route: 048
     Dates: start: 20090614, end: 20090614
  9. PERINDOPRIL ERBUMINE [Suspect]
     Indication: HYPERTENSION
     Dosage: (4 MG QD ORAL)
     Route: 048
  10. PRAVASTATIN SODIUM [Suspect]
     Indication: HYPERCHOLESTEROLAEMIA
     Dosage: (20 MG QD ORAL)
     Route: 048

REACTIONS (4)
  - COLITIS ISCHAEMIC [None]
  - DIVERTICULUM [None]
  - HYPERTENSION [None]
  - RECTAL HAEMORRHAGE [None]
